FAERS Safety Report 9349952 (Version 1)
Quarter: 2013Q2

REPORT INFORMATION
  Report Type: Spontaneous
  Country: FR (occurrence: FR)
  Receive Date: 20130614
  Receipt Date: 20130614
  Transmission Date: 20140414
  Serious: Yes (Hospitalization)
  Sender: FDA-Public Use
  Company Number: PHHY2013FR059977

PATIENT
  Age: 64 Year
  Sex: Male

DRUGS (3)
  1. GLIVEC [Suspect]
     Indication: CHRONIC MYELOID LEUKAEMIA
     Dosage: 400 MG, QD
     Route: 048
     Dates: start: 2007, end: 20121106
  2. GLIVEC [Suspect]
     Dosage: 300 MG, QD
     Route: 048
     Dates: start: 20121106
  3. INTRONA [Suspect]
     Indication: CHRONIC MYELOID LEUKAEMIA
     Dosage: 3.5 MIU, 3 PER WEEK
     Route: 058
     Dates: start: 1999, end: 2007

REACTIONS (2)
  - Pancreatic carcinoma [Recovering/Resolving]
  - Second primary malignancy [Recovering/Resolving]
